FAERS Safety Report 11940919 (Version 1)
Quarter: 2016Q1

REPORT INFORMATION
  Report Type: Spontaneous
  Country: IL (occurrence: IL)
  Receive Date: 20160122
  Receipt Date: 20160122
  Transmission Date: 20160526
  Serious: Yes (Hospitalization)
  Sender: FDA-Public Use
  Company Number: IL-ABBVIE-16P-082-1540217-00

PATIENT
  Sex: Female

DRUGS (2)
  1. VIEKIRAX [Suspect]
     Active Substance: OMBITASVIR\PARITAPREVIR\RITONAVIR
     Indication: CHRONIC HEPATITIS C
     Route: 048
  2. EXVIERA [Suspect]
     Active Substance: DASABUVIR
     Indication: CHRONIC HEPATITIS C
     Route: 048

REACTIONS (5)
  - Jaundice [Recovering/Resolving]
  - Cholelithiasis [Recovering/Resolving]
  - Hepatic failure [Recovering/Resolving]
  - Cholestasis [Recovering/Resolving]
  - Ascites [Recovering/Resolving]
